FAERS Safety Report 7506650-8 (Version None)
Quarter: 2011Q2

REPORT INFORMATION
  Report Type: 
  Country: None (occurrence: None)
  Receive Date: 20110412
  Receipt Date: 20110114
  Transmission Date: 20111010
  Serious: Yes (Hospitalization)
  Sender: FDA-Public Use
  Company Number: 2011027405

PATIENT
  Sex: Female

DRUGS (6)
  1. PERFOROMIST (FORMOTEROL) [Concomitant]
  2. DIOVAN [Concomitant]
  3. SYNTHROID [Concomitant]
  4. HIZENTRA [Suspect]
     Dosage: SUBCUTANEOUS
     Route: 058
     Dates: start: 20101117, end: 20101117
  5. BUPROPION (BUPROPION) [Concomitant]
  6. ADVAIR HFA [Concomitant]

REACTIONS (6)
  - MALAISE [None]
  - HEADACHE [None]
  - SOMNOLENCE [None]
  - BLOOD PRESSURE DECREASED [None]
  - DIZZINESS [None]
  - LETHARGY [None]
